FAERS Safety Report 7072552-7 (Version None)
Quarter: 2010Q4

REPORT INFORMATION
  Report Type: 
  Country: None (occurrence: None)
  Receive Date: 20101029
  Receipt Date: 20100210
  Transmission Date: 20110411
  Serious: No
  Sender: FDA-Public Use
  Company Number: A0843884A

PATIENT
  Age: 61 Year
  Sex: Female

DRUGS (4)
  1. ADVAIR DISKUS 100/50 [Suspect]
     Indication: CHRONIC OBSTRUCTIVE PULMONARY DISEASE
     Dosage: 1PUFF PER DAY
     Route: 055
     Dates: start: 20080101, end: 20090101
  2. BLOOD PRESSURE MEDICATION [Concomitant]
  3. ANTI-CHOLESTEROL MEDICATION [Concomitant]
  4. VITAMINS [Concomitant]

REACTIONS (5)
  - DYSPHONIA [None]
  - PHARYNGEAL ERYTHEMA [None]
  - PHARYNGEAL OEDEMA [None]
  - THERMAL BURN [None]
  - THROAT IRRITATION [None]
